FAERS Safety Report 8471443-4 (Version None)
Quarter: 2012Q2

REPORT INFORMATION
  Report Type: 
  Country: None (occurrence: None)
  Receive Date: 20120323
  Receipt Date: 20111003
  Transmission Date: 20120825
  Serious: Yes (Hospitalization)
  Sender: FDA-Public Use
  Company Number: 163-21880-11100291

PATIENT
  Age: 75 Year
  Sex: Male

DRUGS (1)
  1. LENALIDOMIDE [Suspect]
     Indication: NEOPLASM MALIGNANT
     Dosage: 10 MG, QD X 21, PO
     Route: 048
     Dates: start: 20110331, end: 20110906

REACTIONS (1)
  - SEPSIS [None]
